FAERS Safety Report 4601466-4 (Version None)
Quarter: 2005Q1

REPORT INFORMATION
  Report Type: 
  Country: None (occurrence: None)
  Receive Date: 20050302
  Receipt Date: 20050218
  Transmission Date: 20050727
  Serious: Yes (Hospitalization)
  Sender: FDA-Public Use
  Company Number: GXKR2005CH00611

PATIENT
  Age: 77 Year
  Sex: Male

DRUGS (13)
  1. RIFAMPICIN [Suspect]
     Dosage: ORAL
     Route: 048
     Dates: start: 20041231, end: 20050103
  2. VANCOCIN (VANCOMYCIN HYDROCHLORIDE) VIAL [Suspect]
     Dosage: 1 G, QW2, INTRAVENOUS
     Route: 042
     Dates: start: 20041217, end: 20041227
  3. ENALAPRIL MALEATE [Concomitant]
  4. NORVASC [Concomitant]
  5. CARDURA CR (DOXAZOSIN) [Concomitant]
  6. METOLAZONE [Concomitant]
  7. TOREM (TORASEMIDE) TABLET [Concomitant]
  8. SORTIS (ATORVASTATIN CALCIUM) FILM-COATED TABLET [Concomitant]
  9. CALCIUM ACETATE (CALCIUM ACETATE) [Concomitant]
  10. CALCITRIOL [Concomitant]
  11. ARANESP [Concomitant]
  12. INSULIN MIXTARD (INSULIN INJECTION, ISOPHANE) [Concomitant]
  13. SINTROM [Concomitant]

REACTIONS (4)
  - DERMATITIS EXFOLIATIVE [None]
  - INFLAMMATION [None]
  - LEUKOCYTOSIS [None]
  - RED MAN SYNDROME [None]
